FAERS Safety Report 22752436 (Version 3)
Quarter: 2023Q4

REPORT INFORMATION
  Report Type: Report from Study
  Country: CA (occurrence: CA)
  Receive Date: 20230726
  Receipt Date: 20231214
  Transmission Date: 20240110
  Serious: Yes (Death, Hospitalization, Other)
  Sender: FDA-Public Use
  Company Number: CA-JNJFOC-20230509974

PATIENT
  Age: 83 Year
  Sex: Female

DRUGS (14)
  1. OPSUMIT [Suspect]
     Active Substance: MACITENTAN
     Indication: Pulmonary hypertension
     Dosage: THERAPY END DATE:
     Route: 048
     Dates: start: 20181208
  2. OPSUMIT [Suspect]
     Active Substance: MACITENTAN
     Indication: Pulmonary arterial hypertension
  3. ALPRAZOLAM [Concomitant]
     Active Substance: ALPRAZOLAM
  4. JANUMET [Concomitant]
     Active Substance: METFORMIN HYDROCHLORIDE\SITAGLIPTIN PHOSPHATE
  5. ATORVASTATIN [Concomitant]
     Active Substance: ATORVASTATIN
  6. NIFEDIPINE [Concomitant]
     Active Substance: NIFEDIPINE
  7. MAGNESIUM [Concomitant]
     Active Substance: MAGNESIUM
  8. SPIRONOLACTONE [Concomitant]
     Active Substance: SPIRONOLACTONE
  9. JAMP K20 [Concomitant]
  10. PANTOPRAZOLE [Concomitant]
     Active Substance: PANTOPRAZOLE
  11. FERROUS SULFATE [Concomitant]
     Active Substance: FERROUS SULFATE
  12. VALSARTAN [Concomitant]
     Active Substance: VALSARTAN
  13. HYDROCORTISONE [Concomitant]
     Active Substance: HYDROCORTISONE
  14. CLOTRIMAZOLE [Concomitant]
     Active Substance: CLOTRIMAZOLE

REACTIONS (5)
  - Death [Fatal]
  - Dependence on oxygen therapy [Unknown]
  - Palliative care [Unknown]
  - Haemorrhoids [Not Recovered/Not Resolved]
  - Swelling [Not Recovered/Not Resolved]
